FAERS Safety Report 10637546 (Version 1)
Quarter: 2014Q4

REPORT INFORMATION
  Report Type: Spontaneous
  Country: US (occurrence: US)
  Receive Date: 20141208
  Receipt Date: 20141208
  Transmission Date: 20150529
  Serious: No
  Sender: FDA-Public Use
  Company Number: US-PFIZER INC-2014329740

PATIENT
  Age: 32 Year
  Sex: Female
  Weight: 54 kg

DRUGS (2)
  1. ROBITUSSIN MEDI-SOOTHERS COUGH DM [Suspect]
     Active Substance: DEXTROMETHORPHAN HYDROBROMIDE\MENTHOL
     Indication: OROPHARYNGEAL PAIN
  2. ROBITUSSIN MEDI-SOOTHERS COUGH DM [Suspect]
     Active Substance: DEXTROMETHORPHAN HYDROBROMIDE\MENTHOL
     Indication: NASOPHARYNGITIS
     Dosage: 1 LOZENGE, ONCE
     Route: 048
     Dates: start: 201411

REACTIONS (4)
  - Lip pain [Recovered/Resolved]
  - Hypersensitivity [Recovered/Resolved]
  - Secretion discharge [Recovered/Resolved]
  - Lip swelling [Recovered/Resolved]

NARRATIVE: CASE EVENT DATE: 20141127
